FAERS Safety Report 5017991-0 (Version None)
Quarter: 2006Q2

REPORT INFORMATION
  Report Type: 
  Country: None (occurrence: None)
  Receive Date: 20060602
  Receipt Date: 20060602
  Transmission Date: 20061013
  Serious: Yes (Hospitalization)
  Sender: FDA-Public Use
  Company Number: None

PATIENT
  Sex: Female
  Weight: 81.1939 kg

DRUGS (1)
  1. PROPRANOLOL [Suspect]
     Indication: MIGRAINE PROPHYLAXIS
     Dosage: 40 MG (1 TABLET) TWICE DAILY ORAL
     Route: 048
     Dates: start: 19980101, end: 20060101

REACTIONS (2)
  - BRADYCARDIA [None]
  - SYNCOPE [None]
